FAERS Safety Report 7121807-6 (Version None)
Quarter: 2010Q4

REPORT INFORMATION
  Report Type: 
  Country: None (occurrence: None)
  Receive Date: 20101124
  Receipt Date: 20101111
  Transmission Date: 20110411
  Serious: Yes (Other)
  Sender: FDA-Public Use
  Company Number: PHHY2010US76978

PATIENT
  Sex: Female

DRUGS (2)
  1. TEGRETOL [Suspect]
     Dosage: UNK
  2. NEUROTHIO [Suspect]
     Dosage: UNK

REACTIONS (3)
  - HIP ARTHROPLASTY [None]
  - HIP FRACTURE [None]
  - LOSS OF CONSCIOUSNESS [None]
